FAERS Safety Report 5597666-X (Version None)
Quarter: 2008Q1

REPORT INFORMATION
  Report Type: 
  Country: None (occurrence: None)
  Receive Date: 20080121
  Receipt Date: 20071206
  Transmission Date: 20080703
  Serious: Yes (Death)
  Sender: FDA-Public Use
  Company Number: US-GILEAD-2007-0013789

PATIENT
  Sex: Female

DRUGS (3)
  1. TRUVADA [Suspect]
     Route: 064
     Dates: start: 20070821
  2. ATAZANAVIR SULFATE [Concomitant]
     Route: 064
     Dates: start: 20070821
  3. RITONAVIR [Concomitant]
     Route: 064
     Dates: start: 20070821

REACTIONS (1)
  - DEATH [None]
